FAERS Safety Report 5346224-0 (Version None)
Quarter: 2007Q2

REPORT INFORMATION
  Report Type: 
  Country: None (occurrence: None)
  Receive Date: 20070605
  Receipt Date: 20070528
  Transmission Date: 20071010
  Serious: Yes (Hospitalization, Disabling, Other)
  Sender: FDA-Public Use
  Company Number: GB-ABBOTT-06P-167-0340987-00

PATIENT
  Sex: Male
  Weight: 60.9 kg

DRUGS (5)
  1. HUMIRA [Suspect]
     Indication: RHEUMATOID ARTHRITIS
     Route: 058
     Dates: start: 20050415, end: 20060601
  2. PARACETAMOL [Concomitant]
     Indication: ANALGESIC EFFECT
     Route: 048
     Dates: start: 19730101
  3. IBUPROFEN [Concomitant]
     Indication: ANALGESIC EFFECT
     Route: 048
     Dates: start: 19730101
  4. METHOTREXATE SODIUM [Concomitant]
     Indication: DRUG USE FOR UNKNOWN INDICATION
     Dates: start: 20040701, end: 20040801
  5. BRUFEN RETARD [Concomitant]
     Indication: DRUG USE FOR UNKNOWN INDICATION

REACTIONS (3)
  - HAEMARTHROSIS [None]
  - PAIN [None]
  - SWELLING [None]
